FAERS Safety Report 7381098-8 (Version None)
Quarter: 2011Q1

REPORT INFORMATION
  Report Type: 
  Country: None (occurrence: None)
  Receive Date: 20110329
  Receipt Date: 20100804
  Transmission Date: 20110831
  Serious: No
  Sender: FDA-Public Use
  Company Number: US-AMGEN-KDL429002

PATIENT
  Sex: Male

DRUGS (4)
  1. SENSIPAR [Suspect]
     Indication: PRODUCT USED FOR UNKNOWN INDICATION
     Dosage: 30 MG, QD
     Dates: start: 20100520
  2. ACETYLSALICYLIC ACID [Concomitant]
     Dosage: UNK UNK, UNK
  3. COLCHICINE [Concomitant]
     Dosage: UNK UNK, UNK
  4. FAMOTIDINE [Concomitant]
     Dosage: UNK UNK, UNK

REACTIONS (1)
  - ABDOMINAL DISCOMFORT [None]
